FAERS Safety Report 6378632-3 (Version None)
Quarter: 2009Q3

REPORT INFORMATION
  Report Type: 
  Country: None (occurrence: None)
  Receive Date: 20090921
  Receipt Date: 20090908
  Transmission Date: 20100115
  Serious: Yes (Hospitalization)
  Sender: FDA-Public Use
  Company Number: TRP_06136_2009

PATIENT
  Sex: Male
  Weight: 86.1834 kg

DRUGS (10)
  1. INFERGEN [Suspect]
     Indication: HEPATITIS C
     Dosage: (15 ?G QD SUBCUTANEOUS)
     Route: 058
     Dates: start: 20090311, end: 20090630
  2. RIBAVIRIN [Suspect]
     Indication: HEPATITIS C
     Dosage: (1000 MG, [400 MG QAM AND 600 MG QPM] ORAL)
     Route: 048
     Dates: start: 20090311, end: 20090630
  3. LISINOPRIL [Concomitant]
  4. REGLAN [Concomitant]
  5. NOVOLOG [Concomitant]
  6. LANTUS [Concomitant]
  7. ALTACE [Concomitant]
  8. INSULIN [Concomitant]
  9. THERAPEUTIC PHLEBOTOMY [Concomitant]
  10. AMARYL [Concomitant]

REACTIONS (16)
  - ARTHRALGIA [None]
  - BACK PAIN [None]
  - BLOOD GLUCOSE INCREASED [None]
  - CELLULITIS [None]
  - COMPARTMENT SYNDROME [None]
  - DEEP VEIN THROMBOSIS [None]
  - DIARRHOEA [None]
  - FATIGUE [None]
  - INJECTION SITE ERYTHEMA [None]
  - INJECTION SITE RASH [None]
  - OEDEMA PERIPHERAL [None]
  - PLATELET COUNT INCREASED [None]
  - PYREXIA [None]
  - RASH PRURITIC [None]
  - WEIGHT DECREASED [None]
  - WHITE BLOOD CELL COUNT DECREASED [None]
